FAERS Safety Report 5420793-4 (Version None)
Quarter: 2007Q3

REPORT INFORMATION
  Report Type: 
  Country: None (occurrence: None)
  Receive Date: 20070821
  Receipt Date: 20070808
  Transmission Date: 20080115
  Serious: Yes (Hospitalization)
  Sender: FDA-Public Use
  Company Number: FR-BAYER-200710479BFR

PATIENT
  Age: 45 Year
  Sex: Female

DRUGS (14)
  1. CIPROFLOXACIN HCL [Suspect]
     Indication: PSEUDOMONAS INFECTION
     Dosage: TOTAL DAILY DOSE: 1.5 G  UNIT DOSE: 750 MG
     Route: 048
     Dates: start: 20070608, end: 20070626
  2. TAZOCILLINE [Suspect]
     Indication: PSEUDOMONAS INFECTION
     Route: 042
     Dates: start: 20070608, end: 20070626
  3. ESIDRIX [Concomitant]
     Indication: UNEVALUABLE EVENT
     Dosage: UNIT DOSE: 25 MG
     Route: 048
  4. ZOCOR [Concomitant]
     Indication: UNEVALUABLE EVENT
     Dosage: UNIT DOSE: 20 MG
     Route: 048
  5. KARDEGIC [Concomitant]
     Indication: UNEVALUABLE EVENT
     Dosage: UNIT DOSE: 160 MG
  6. DOLIPRANE [Concomitant]
     Indication: UNEVALUABLE EVENT
     Dosage: UNIT DOSE: 500 MG
     Route: 048
  7. DESLORATADINE [Concomitant]
     Indication: UNEVALUABLE EVENT
     Dosage: UNIT DOSE: 5 MG
     Dates: end: 20070627
  8. MYOLASTAN [Concomitant]
     Indication: UNEVALUABLE EVENT
     Route: 048
     Dates: end: 20070627
  9. COUMADIN [Concomitant]
     Indication: UNEVALUABLE EVENT
     Route: 048
  10. TRAMADOL HCL [Concomitant]
     Indication: UNEVALUABLE EVENT
     Dosage: UNIT DOSE: 200 MG
     Route: 048
  11. LYRICA [Concomitant]
     Indication: UNEVALUABLE EVENT
     Dosage: UNIT DOSE: 125 MG
     Route: 048
     Dates: end: 20070627
  12. TARDYFERON [Concomitant]
     Indication: UNEVALUABLE EVENT
     Route: 048
  13. CLONAZEPAM [Concomitant]
     Indication: UNEVALUABLE EVENT
     Route: 048
  14. COZAAR [Concomitant]
     Indication: UNEVALUABLE EVENT
     Dosage: UNIT DOSE: 50 MG
     Route: 048

REACTIONS (6)
  - AGRANULOCYTOSIS [None]
  - DYSPHAGIA [None]
  - PAROTID GLAND ENLARGEMENT [None]
  - PHARYNGEAL DISORDER [None]
  - PYREXIA [None]
  - STREPTOCOCCAL INFECTION [None]
